FAERS Safety Report 5662008-8 (Version None)
Quarter: 2008Q1

REPORT INFORMATION
  Report Type: 
  Country: None (occurrence: None)
  Receive Date: 20080205
  Receipt Date: 20071120
  Transmission Date: 20080703
  Serious: Yes (Hospitalization)
  Sender: FDA-Public Use
  Company Number: MEDI-0006142

PATIENT
  Sex: Male

DRUGS (10)
  1. ETHYOL [Suspect]
     Indication: RADIOTHERAPY
     Dosage: 1 IN 1 D, SUBCUTANEOUS ; 1 IN 1 D, SUBCUTANEOUS
     Route: 058
     Dates: start: 20070814, end: 20070829
  2. ETHYOL [Suspect]
     Indication: RADIOTHERAPY
     Dosage: 1 IN 1 D, SUBCUTANEOUS ; 1 IN 1 D, SUBCUTANEOUS
     Route: 058
     Dates: start: 20070831, end: 20070831
  3. RADIATION THERAPY [Concomitant]
  4. CISPLATIN [Concomitant]
  5. SODIUM CHLORIDE [Concomitant]
  6. OXYCODONE HCL [Concomitant]
  7. ONDANSETRON HCL [Concomitant]
  8. CETIRIZINE HCL [Concomitant]
  9. PROCHLORPERAZINE MALEATE [Concomitant]
  10. DOCUSATE (DOCUSATE) [Concomitant]

REACTIONS (6)
  - FLUSHING [None]
  - GENERALISED ERYTHEMA [None]
  - HYPOTENSION [None]
  - MALAISE [None]
  - PYREXIA [None]
  - TACHYCARDIA [None]
